FAERS Safety Report 16268158 (Version 1)
Quarter: 2019Q2

REPORT INFORMATION
  Report Type: Spontaneous
  Country: SE (occurrence: SE)
  Receive Date: 20190503
  Receipt Date: 20190503
  Transmission Date: 20190711
  Serious: Yes (Hospitalization)
  Sender: FDA-Public Use
  Company Number: SE-TEVA-2019-SE-1044768

PATIENT
  Age: 15 Year
  Sex: Female

DRUGS (4)
  1. IMODIUM [Suspect]
     Active Substance: LOPERAMIDE HYDROCHLORIDE
     Route: 048
     Dates: start: 20160708, end: 20160708
  2. IPREN [Suspect]
     Active Substance: IBUPROFEN
     Dates: start: 20160708, end: 20160708
  3. CETIRIZINE [Suspect]
     Active Substance: CETIRIZINE HYDROCHLORIDE
     Dosage: 40 ST
     Route: 048
     Dates: start: 20160708, end: 20160708
  4. DIMOR [Suspect]
     Active Substance: LOPERAMIDE
     Route: 048
     Dates: start: 20160708, end: 20160708

REACTIONS (3)
  - Intentional overdose [Recovered/Resolved]
  - Intentional self-injury [Recovered/Resolved]
  - Tachycardia [Recovered/Resolved]

NARRATIVE: CASE EVENT DATE: 20160708
